FAERS Safety Report 7804272-2 (Version None)
Quarter: 2011Q4

REPORT INFORMATION
  Report Type: 
  Country: None (occurrence: None)
  Receive Date: 20111010
  Receipt Date: 20111005
  Transmission Date: 20120403
  Serious: Yes (Death, Hospitalization, Other)
  Sender: FDA-Public Use
  Company Number: PHHY2011IR72751

PATIENT
  Age: 33 Year
  Sex: Female

DRUGS (3)
  1. SANDIMMUNE [Suspect]
     Indication: RENAL TRANSPLANT
     Dosage: 175 MG, DAILY
  2. MYCOPHENOLATE MOFETIL [Concomitant]
     Indication: RENAL TRANSPLANT
     Dosage: 1000 MG, BID
     Route: 048
  3. PREDNISOLONE [Concomitant]
     Indication: RENAL TRANSPLANT
     Dosage: 5 MG,DAILY

REACTIONS (16)
  - ENCEPHALITIS [None]
  - CSF PRESSURE INCREASED [None]
  - TUBERCULOSIS [None]
  - ASPERGILLOSIS [None]
  - CSF WHITE BLOOD CELL COUNT INCREASED [None]
  - PYREXIA [None]
  - HEMIPARESIS [None]
  - LYMPHADENOPATHY [None]
  - HYDROCEPHALUS [None]
  - CSF PROTEIN INCREASED [None]
  - HAEMOGLOBIN DECREASED [None]
  - CENTRAL NERVOUS SYSTEM LESION [None]
  - C-REACTIVE PROTEIN INCREASED [None]
  - CSF POLYMORPHONUCLEAR CELL COUNT INCREASED [None]
  - DEPRESSED LEVEL OF CONSCIOUSNESS [None]
  - SPLENOMEGALY [None]
